FAERS Safety Report 6491526-8 (Version None)
Quarter: 2009Q4

REPORT INFORMATION
  Report Type: 
  Country: None (occurrence: None)
  Receive Date: 20091211
  Receipt Date: 20091202
  Transmission Date: 20100525
  Serious: Yes (Other)
  Sender: FDA-Public Use
  Company Number: US-JNJCH-2009029935

PATIENT
  Age: 53 Year
  Sex: Male

DRUGS (1)
  1. ROGAINE [Suspect]
     Indication: ALOPECIA
     Dosage: TEXT:HALF A CAPFUL ONCE DAILY
     Route: 061

REACTIONS (5)
  - ALOPECIA [None]
  - APPLICATION SITE BURN [None]
  - APPLICATION SITE PAIN [None]
  - SCAB [None]
  - UNDERDOSE [None]
